FAERS Safety Report 8600591-0 (Version None)
Quarter: 2012Q3

REPORT INFORMATION
  Report Type: 
  Country: None (occurrence: None)
  Receive Date: 20120817
  Receipt Date: 20120809
  Transmission Date: 20120928
  Serious: Yes (Other)
  Sender: FDA-Public Use
  Company Number: GB-ELI_LILLY_AND_COMPANY-GB201208003587

PATIENT
  Age: 80 Year
  Sex: Male

DRUGS (1)
  1. CIALIS [Suspect]
     Dosage: UNK, UNKNOWN

REACTIONS (3)
  - HIP ARTHROPLASTY [None]
  - INCORRECT PRODUCT STORAGE [None]
  - POST PROCEDURAL COMPLICATION [None]
